FAERS Safety Report 22536483 (Version 1)
Quarter: 2023Q2

REPORT INFORMATION
  Report Type: Spontaneous
  Country: GB (occurrence: GB)
  Receive Date: 20230608
  Receipt Date: 20230608
  Transmission Date: 20230721
  Serious: Yes (Hospitalization)
  Sender: FDA-Public Use
  Company Number: GB-AMGEN-GBRSP2023094750

PATIENT
  Age: 55 Year
  Sex: Male

DRUGS (2)
  1. ADALIMUMAB [Suspect]
     Active Substance: ADALIMUMAB
     Indication: Psoriatic arthropathy
     Dosage: UNK
     Route: 065
  2. METHOTREXATE [Concomitant]
     Active Substance: METHOTREXATE

REACTIONS (11)
  - Psoriatic arthropathy [Recovered/Resolved]
  - Seizure [Unknown]
  - Acute kidney injury [Unknown]
  - Renal failure [Unknown]
  - Proteinuria [Unknown]
  - Azotaemia [Unknown]
  - Tubulointerstitial nephritis [Unknown]
  - Angiotensin converting enzyme increased [Unknown]
  - Cerebral small vessel ischaemic disease [Unknown]
  - Renal impairment [Unknown]
  - Hypertension [Unknown]
